FAERS Safety Report 14297586 (Version 1)
Quarter: 2017Q4

REPORT INFORMATION
  Report Type: Spontaneous
  Country: IT (occurrence: IT)
  Receive Date: 20171218
  Receipt Date: 20171218
  Transmission Date: 20180321
  Serious: Yes (Death)
  Sender: FDA-Public Use
  Company Number: PHHY2017IT185362

PATIENT
  Age: 37 Year
  Sex: Male

DRUGS (4)
  1. PHENDIMETRAZINE. [Suspect]
     Active Substance: PHENDIMETRAZINE TARTRATE
     Indication: OBESITY
     Dosage: 210 MG, QD (VARIED BETWEEN 180 AND 210 MG/D)
     Route: 065
  2. METFORMIN [Concomitant]
     Active Substance: METFORMIN HYDROCHLORIDE
     Indication: PRODUCT USED FOR UNKNOWN INDICATION
     Dosage: UNK
     Route: 048
  3. IODOCASEIN [Concomitant]
     Active Substance: IODINATED CASEIN
     Indication: PRODUCT USED FOR UNKNOWN INDICATION
     Dosage: UNK
     Route: 065
  4. DIPOTASSIUM CHLORAZEPATE [Concomitant]
     Indication: PRODUCT USED FOR UNKNOWN INDICATION
     Dosage: UNK
     Route: 065

REACTIONS (7)
  - Arteriosclerosis coronary artery [Fatal]
  - Cardiomyopathy [Fatal]
  - Myocardial fibrosis [Fatal]
  - Cardiac hypertrophy [Fatal]
  - Myocardial necrosis [Fatal]
  - Sudden death [Fatal]
  - Left ventricular dilatation [Fatal]
